FAERS Safety Report 12528263 (Version 1)
Quarter: 2016Q3

REPORT INFORMATION
  Report Type: Spontaneous
  Country: US (occurrence: US)
  Receive Date: 20160705
  Receipt Date: 20160705
  Transmission Date: 20161109
  Serious: Yes (Other)
  Sender: FDA-Public Use
  Company Number: US-PFIZER INC-2016325132

PATIENT
  Age: 79 Year
  Sex: Female

DRUGS (1)
  1. LYRICA [Suspect]
     Active Substance: PREGABALIN
     Dosage: UNK

REACTIONS (15)
  - Mobility decreased [Unknown]
  - Pain in extremity [Unknown]
  - Rib fracture [Unknown]
  - Traumatic lung injury [Unknown]
  - Asthenia [Unknown]
  - Cerebrovascular accident [Unknown]
  - Neuropathy peripheral [Unknown]
  - Swelling [Unknown]
  - Hiatus hernia [Unknown]
  - Fall [Unknown]
  - Burning sensation [Unknown]
  - Vein disorder [Unknown]
  - Coma [Unknown]
  - Dyspnoea [Unknown]
  - Insomnia [Unknown]
